FAERS Safety Report 24241384 (Version 2)
Quarter: 2024Q3

REPORT INFORMATION
  Report Type: Report from Study
  Country: CA (occurrence: CA)
  Receive Date: 20240823
  Receipt Date: 20240910
  Transmission Date: 20241016
  Serious: Yes (Death, Other)
  Sender: VERITY PHARMACEUTICALS
  Company Number: CA-VER-202400380

PATIENT
  Age: 77 Year
  Sex: Male

DRUGS (2)
  1. TRELSTAR [Suspect]
     Active Substance: TRIPTORELIN PAMOATE
     Indication: Prostate cancer
     Dosage: 0.125 MILLIGRAM(S) (22.5 MILLIGRAM(S), 1 IN 6 MONTH); POWDER FOR PROLONGED-RELEASE SUSPENSION FOR IN
     Route: 030
     Dates: start: 20230504, end: 20230504
  2. TRELSTAR [Suspect]
     Active Substance: TRIPTORELIN PAMOATE
     Indication: Prostate cancer
     Dosage: START DATE: 15-NOV-2023??0.125 MILLIGRAM(S) (22.5 MILLIGRAM(S), 1 IN 6 MONTH); POWDER FOR PROLONGED-
     Route: 030
     Dates: end: 20231115

REACTIONS (4)
  - Blood pressure systolic increased [Unknown]
  - Prostate cancer metastatic [Fatal]
  - Inappropriate schedule of product administration [Recovered/Resolved]
  - Product dose omission issue [Not Recovered/Not Resolved]

NARRATIVE: CASE EVENT DATE: 20230504
